FAERS Safety Report 6998686-0 (Version None)
Quarter: 2010Q3

REPORT INFORMATION
  Report Type: 
  Country: None (occurrence: None)
  Receive Date: 20100920
  Receipt Date: 20100908
  Transmission Date: 20110219
  Serious: Yes (Other)
  Sender: FDA-Public Use
  Company Number: CN-SANOFI-AVENTIS-2010SA053901

PATIENT

DRUGS (5)
  1. OXALIPLATIN [Suspect]
     Route: 041
  2. CALCIUM FOLINATE [Suspect]
     Route: 041
  3. FLUOROURACIL [Suspect]
     Route: 042
  4. CAPECITABINE [Suspect]
     Route: 048
  5. VITAMIN B6 [Concomitant]

REACTIONS (5)
  - BLOOD DISORDER [None]
  - GASTROENTERITIS RADIATION [None]
  - PALMAR-PLANTAR ERYTHRODYSAESTHESIA SYNDROME [None]
  - RADIATION MUCOSITIS [None]
  - RADIATION SKIN INJURY [None]
